FAERS Safety Report 9260049 (Version 2)
Quarter: 2013Q2

REPORT INFORMATION
  Report Type: Spontaneous
  Country: US (occurrence: US)
  Receive Date: 20130429
  Receipt Date: 20130522
  Transmission Date: 20140414
  Serious: Yes (Hospitalization)
  Sender: FDA-Public Use
  Company Number: US-BAYER-2013-051452

PATIENT
  Age: 49 Year
  Sex: Female

DRUGS (9)
  1. YASMIN [Suspect]
     Dosage: UNK
     Dates: start: 200503
  2. VALIUM [Concomitant]
     Dosage: 5 MG/Q6H PRN
     Dates: start: 20050504, end: 20050505
  3. Z-PAK [Concomitant]
     Dosage: 250 MG, UNK
     Dates: start: 20050504, end: 20050505
  4. SINGULAIR [Concomitant]
     Dosage: 10 MG, UNK
     Dates: start: 20050505
  5. TYLENOL [Concomitant]
     Dosage: UNK
     Dates: start: 20050616
  6. MOTRIN [Concomitant]
     Dosage: UNK
     Dates: start: 20050616
  7. DARVOCET [Concomitant]
     Indication: PAIN
     Dosage: UNK
     Dates: start: 20050616
  8. PHENERGAN [Concomitant]
     Indication: NAUSEA
  9. PERCOCET 5/325 [Concomitant]
     Indication: PAIN
     Dosage: 1-2, Q4HR

REACTIONS (9)
  - Thrombophlebitis superficial [None]
  - Cholelithiasis [None]
  - Thrombophlebitis superficial [None]
  - Pain [None]
  - Injury [None]
  - General physical health deterioration [None]
  - Anxiety [None]
  - Emotional distress [None]
  - Pain [None]
